FAERS Safety Report 20134135 (Version 1)
Quarter: 2021Q4

REPORT INFORMATION
  Report Type: Report from Study
  Country: CA (occurrence: CA)
  Receive Date: 20211201
  Receipt Date: 20211201
  Transmission Date: 20220303
  Serious: Yes (Other)
  Sender: FDA-Public Use
  Company Number: CA-ABBVIE-21K-028-4179971-00

PATIENT
  Sex: Male

DRUGS (1)
  1. HUMIRA [Suspect]
     Active Substance: ADALIMUMAB
     Indication: Crohn^s disease
     Route: 058
     Dates: start: 20180719

REACTIONS (7)
  - Suicidal ideation [Unknown]
  - Malaise [Unknown]
  - Intervertebral disc protrusion [Unknown]
  - Depression [Unknown]
  - Hypertension [Unknown]
  - Drug ineffective [Unknown]
  - Pain [Unknown]
